FAERS Safety Report 9425898 (Version 2)
Quarter: 2013Q4

REPORT INFORMATION
  Report Type: Spontaneous
  Country: US (occurrence: US)
  Receive Date: 20130729
  Receipt Date: 20131015
  Transmission Date: 20140711
  Serious: No
  Sender: FDA-Public Use
  Company Number: US-009507513-1307USA004381

PATIENT
  Sex: Female

DRUGS (9)
  1. ZOCOR [Suspect]
     Indication: LIPIDS INCREASED
     Dosage: 40 MG, UNK
     Route: 048
  2. PRAVACHOL [Suspect]
     Indication: LIPIDS INCREASED
     Dosage: 40 MG, UNK
     Route: 048
  3. PREMPRO [Suspect]
     Indication: MENOPAUSAL SYMPTOMS
     Route: 048
  4. EFFEXOR XR [Suspect]
     Dosage: 150 MG, UNK
  5. LYRICA [Suspect]
     Dosage: UNK, BID, 1/1
     Route: 048
  6. LOVASTATIN [Concomitant]
  7. ATIVAN [Concomitant]
  8. AMBIEN [Concomitant]
  9. LOTENSIN HCT [Suspect]

REACTIONS (4)
  - Vaginal haemorrhage [Recovered/Resolved]
  - Adverse event [Unknown]
  - Myalgia [Recovered/Resolved]
  - Myalgia [Recovered/Resolved]
